FAERS Safety Report 9398501 (Version 1)
Quarter: 2013Q3

REPORT INFORMATION
  Report Type: Spontaneous
  Country: CA (occurrence: CA)
  Receive Date: 20130712
  Receipt Date: 20130712
  Transmission Date: 20140515
  Serious: Yes (Other)
  Sender: FDA-Public Use
  Company Number: PHHY2013CA072087

PATIENT
  Sex: Male

DRUGS (4)
  1. 5-FLUOROURACIL [Suspect]
     Indication: CHEMOTHERAPY
  2. FOLINIC ACID [Suspect]
     Indication: CHEMOTHERAPY
  3. ELOXATIN [Suspect]
     Indication: CHEMOTHERAPY
  4. FRAGMIN [Suspect]
     Indication: DEEP VEIN THROMBOSIS
     Dosage: UNK

REACTIONS (1)
  - Thrombocytopenia [Recovering/Resolving]
